FAERS Safety Report 7884437-4 (Version None)
Quarter: 2011Q4

REPORT INFORMATION
  Report Type: 
  Country: None (occurrence: None)
  Receive Date: 20111102
  Receipt Date: 20110614
  Transmission Date: 20120403
  Serious: No
  Sender: FDA-Public Use
  Company Number: US-ASTRAZENECA-2011SE36536

PATIENT
  Age: 87 Year
  Sex: Female

DRUGS (7)
  1. VANDETANIB [Suspect]
     Indication: THYROID CANCER
     Route: 048
  2. SYNTHROID [Concomitant]
     Route: 065
  3. IMODIUM MULTI-SYMPTOM RELIEF [Concomitant]
     Route: 065
  4. LORAZEPAM [Concomitant]
     Route: 065
  5. CYCLOBENZAPRINE HCL [Concomitant]
  6. ACETAMINOPHEN AND HYDROCODONE BITARTRATE [Concomitant]
     Route: 065
  7. CALCIUM + D [Concomitant]
     Route: 065

REACTIONS (2)
  - HYPOAESTHESIA [None]
  - OROPHARYNGEAL PAIN [None]
